FAERS Safety Report 8449347-2 (Version None)
Quarter: 2012Q2

REPORT INFORMATION
  Report Type: 
  Country: None (occurrence: None)
  Receive Date: 20120619
  Receipt Date: 20120613
  Transmission Date: 20120825
  Serious: Yes (Hospitalization, Disabling, Other)
  Sender: FDA-Public Use
  Company Number: CA-PFIZER INC-2010098637

PATIENT
  Age: 48 Year
  Sex: Male
  Weight: 118 kg

DRUGS (9)
  1. ASPIRIN [Concomitant]
     Indication: BLOOD PRESSURE ABNORMAL
     Dosage: 80 MG, 1X/DAY
     Route: 048
     Dates: start: 20010101
  2. LIPITOR [Suspect]
     Indication: INFARCTION
  3. PLAVIX [Concomitant]
     Indication: ANTICOAGULANT THERAPY
     Dosage: 75 MG, 1X/DAY
     Route: 048
     Dates: start: 20010101
  4. ASPIRIN [Concomitant]
     Indication: ABDOMINAL DISCOMFORT
  5. LIPITOR [Suspect]
     Indication: BLOOD CHOLESTEROL INCREASED
     Dosage: 80 MG, 1X/DAY AT BEDTIME
     Route: 048
     Dates: start: 20020128, end: 20100901
  6. BISOPROLOL [Concomitant]
     Dosage: 10 MG, 1X/DAY
  7. EZETIMIBE [Suspect]
     Dosage: UNK
     Dates: start: 20100901
  8. PANTOPRAZOLE SODIUM [Concomitant]
     Indication: ABDOMINAL DISCOMFORT
     Dosage: 40 MG, 1X/DAY
     Route: 048
     Dates: start: 20010101
  9. XENICAL [Concomitant]
     Indication: WEIGHT CONTROL
     Dosage: 120 MG, 3X/DAY
     Route: 048
     Dates: start: 20040101

REACTIONS (23)
  - CARDIAC DISORDER [None]
  - VERTIGO POSITIONAL [None]
  - GAIT DISTURBANCE [None]
  - MYALGIA [None]
  - VOMITING [None]
  - MUSCLE RUPTURE [None]
  - OEDEMA PERIPHERAL [None]
  - MYOPATHY [None]
  - PRURITUS [None]
  - ASTHENIA [None]
  - ERECTILE DYSFUNCTION [None]
  - MUSCULOSKELETAL PAIN [None]
  - PSORIASIS [None]
  - PAIN IN EXTREMITY [None]
  - FALL [None]
  - PLANTAR FASCIITIS [None]
  - BURSITIS [None]
  - BALANCE DISORDER [None]
  - DEPRESSION [None]
  - ANXIETY [None]
  - MASS [None]
  - PAIN [None]
  - MALAISE [None]
